FAERS Safety Report 6252272-9 (Version None)
Quarter: 2009Q2

REPORT INFORMATION
  Report Type: 
  Country: None (occurrence: None)
  Receive Date: 20090630
  Receipt Date: 20060427
  Transmission Date: 20091009
  Serious: Yes (Hospitalization)
  Sender: FDA-Public Use
  Company Number: US-ROCHE-639043

PATIENT
  Sex: Male

DRUGS (11)
  1. ENFUVIRTIDE [Suspect]
     Route: 065
     Dates: start: 20050404
  2. EPZICOM [Concomitant]
     Dosage: FREQUENCY REPORTED AS QD
     Dates: start: 20050111, end: 20080814
  3. VIREAD [Concomitant]
     Dosage: REQUENCY REPORTED AS QD
     Dates: start: 20050111, end: 20080814
  4. APTIVUS [Concomitant]
     Dates: start: 20050404, end: 20060824
  5. NORVIR [Concomitant]
     Dates: start: 20050404, end: 20080814
  6. PREZISTA [Concomitant]
     Dates: start: 20060824, end: 20080814
  7. ISENTRESS [Concomitant]
     Dates: start: 20070101, end: 20080814
  8. ACYCLOVIR [Concomitant]
     Dates: start: 20050111, end: 20080814
  9. VALTREX [Concomitant]
     Dosage: FREQUENCY REPORTED AS QD
     Dates: start: 20050301, end: 20080814
  10. DOXYCYCLINE [Concomitant]
     Dosage: STOP DATE REPORTED AS : UNKNOWN/2006
     Dates: start: 20060824
  11. AUGMENTIN XR [Concomitant]
     Dates: start: 20080423, end: 20080503

REACTIONS (1)
  - CHRONIC OBSTRUCTIVE PULMONARY DISEASE [None]
